FAERS Safety Report 4401004-5 (Version None)
Quarter: 2004Q3

REPORT INFORMATION
  Report Type: 
  Country: None (occurrence: None)
  Receive Date: 20040907
  Receipt Date: 20030916
  Transmission Date: 20050211
  Serious: No
  Sender: FDA-Public Use
  Company Number: US-BRISTOL-MYERS SQUIBB COMPANY-12383279

PATIENT
  Sex: Female

DRUGS (2)
  1. COUMADIN [Suspect]
  2. CHEMOTHERAPY [Concomitant]

REACTIONS (1)
  - HAEMATURIA [None]
